FAERS Safety Report 5121044-0 (Version None)
Quarter: 2006Q4

REPORT INFORMATION
  Report Type: 
  Country: None (occurrence: None)
  Receive Date: 20061005
  Receipt Date: 20061002
  Transmission Date: 20070319
  Serious: Yes (Death, Hospitalization)
  Sender: FDA-Public Use
  Company Number: 2006CG01600

PATIENT
  Age: 62 Year
  Sex: Male
  Weight: 80 kg

DRUGS (12)
  1. OMEPRAZOLE [Suspect]
     Route: 048
     Dates: start: 20050101
  2. ZOCOR [Suspect]
     Route: 048
     Dates: start: 20050101
  3. ALDACTONE [Suspect]
     Route: 048
     Dates: start: 20050101
  4. CORTANCYL [Suspect]
     Route: 048
     Dates: start: 20050101
  5. TRAMADOL HCL [Suspect]
     Route: 048
     Dates: start: 20050101
  6. LENALIDOMIDE CELGENE [Suspect]
     Route: 048
     Dates: start: 20060704
  7. ASPIRIN [Suspect]
     Dates: start: 20050101
  8. LASIX [Suspect]
     Dates: start: 20050101
  9. LOW MOLECULAR WEIGHT HEPARIN [Concomitant]
     Indication: THROMBOSIS PROPHYLAXIS
     Dates: start: 20060901
  10. CEFTRIAXONE [Concomitant]
     Dates: start: 20060901, end: 20060901
  11. LEVOFLOXACIN [Concomitant]
     Dates: start: 20060901, end: 20060901
  12. CEPHALOSPORIN THIRD GENERATION [Concomitant]
     Dates: start: 20060901

REACTIONS (3)
  - PNEUMONIA [None]
  - RENAL FAILURE ACUTE [None]
  - SUDDEN DEATH [None]
